FAERS Safety Report 9517496 (Version 1)
Quarter: 2013Q3

REPORT INFORMATION
  Report Type: Spontaneous
  Country: NO (occurrence: NO)
  Receive Date: 20130911
  Receipt Date: 20130911
  Transmission Date: 20140515
  Serious: Yes (Disabling)
  Sender: FDA-Public Use
  Company Number: NO-MYLANLABS-2013S1020117

PATIENT
  Age: 57 Year
  Sex: Female

DRUGS (9)
  1. ALENDRONIC ACID [Suspect]
     Indication: OSTEOPOROSIS
     Route: 048
     Dates: start: 20080805, end: 20130507
  2. LEVAXIN [Concomitant]
     Indication: HYPOTHYROIDISM
     Route: 048
     Dates: start: 2000
  3. ORFIRIL [Concomitant]
     Indication: BIPOLAR DISORDER
     Route: 048
     Dates: start: 2003
  4. CALCIGRAN FORTE [Concomitant]
     Indication: OSTEOPOROSIS
     Route: 048
     Dates: start: 20080805
  5. VENLAFAXINE [Concomitant]
     Indication: BIPOLAR DISORDER
     Route: 048
     Dates: start: 20091118
  6. MODIODAL [Concomitant]
     Indication: HYPERSOMNIA
     Route: 048
     Dates: start: 20110831
  7. LIOTHYRONIN [Concomitant]
     Indication: HYPOTHYROIDISM
     Route: 048
     Dates: start: 2000
  8. CIRCADIN [Concomitant]
     Indication: SLEEP PHASE RHYTHM DISTURBANCE
     Route: 048
     Dates: start: 20130621
  9. LAMICTAL [Concomitant]
     Indication: BIPOLAR DISORDER
     Route: 048
     Dates: start: 2003

REACTIONS (1)
  - Hypersomnia [Not Recovered/Not Resolved]
